FAERS Safety Report 6184916-4 (Version None)
Quarter: 2009Q2

REPORT INFORMATION
  Report Type: 
  Country: None (occurrence: None)
  Receive Date: 20090511
  Receipt Date: 20071112
  Transmission Date: 20091009
  Serious: Yes (Death, Hospitalization, Other)
  Sender: FDA-Public Use
  Company Number: US-ASTRAZENECA-2007UW14022

PATIENT
  Age: 197 Month
  Sex: Male
  Weight: 102 kg

DRUGS (14)
  1. SEROQUEL [Suspect]
     Indication: SLEEP DISORDER
     Dosage: 25MG - 100MG
     Route: 048
     Dates: start: 20050404
  2. KLONOPIN [Concomitant]
  3. PROTONIX [Concomitant]
  4. CATAPRES [Concomitant]
  5. ZOCOR [Concomitant]
  6. CELEXA [Concomitant]
  7. LOPRESSOR [Concomitant]
  8. NOVOLIN 70/30 [Concomitant]
  9. SENNA [Concomitant]
  10. LORAZEPAM [Concomitant]
  11. HYDRALAZINE HCL [Concomitant]
  12. TORADOL [Concomitant]
  13. PRINIVIL [Concomitant]
  14. ASPIRIN [Concomitant]

REACTIONS (28)
  - ABDOMINAL PAIN [None]
  - ABDOMINAL PAIN UPPER [None]
  - AGGRESSION [None]
  - COLITIS [None]
  - CONFUSIONAL STATE [None]
  - DEATH [None]
  - DEPRESSION [None]
  - DIABETES MELLITUS [None]
  - DIABETIC HYPEROSMOLAR COMA [None]
  - DIABETIC KETOACIDOSIS [None]
  - DIABETIC RETINOPATHY [None]
  - DYSPEPSIA [None]
  - HYPERGLYCAEMIA [None]
  - HYPERLIPIDAEMIA [None]
  - HYPERTENSION [None]
  - HYPONATRAEMIA [None]
  - HYPOTENSION [None]
  - HYPOVOLAEMIA [None]
  - MUSCULAR WEAKNESS [None]
  - NAUSEA [None]
  - NEUROPATHY PERIPHERAL [None]
  - PAIN IN EXTREMITY [None]
  - PANCREATITIS ACUTE [None]
  - RENAL FAILURE [None]
  - RETINAL DETACHMENT [None]
  - RETINAL HAEMORRHAGE [None]
  - TOBACCO ABUSE [None]
  - VOMITING [None]
